FAERS Safety Report 23375876 (Version 1)
Quarter: 2024Q1

REPORT INFORMATION
  Report Type: Spontaneous
  Country: IT (occurrence: IT)
  Receive Date: 20240108
  Receipt Date: 20240108
  Transmission Date: 20240410
  Serious: Yes (Hospitalization)
  Sender: FDA-Public Use
  Company Number: IT-MINISAL02-962796

PATIENT
  Age: 40 Year
  Sex: Male

DRUGS (1)
  1. IBUPROFEN [Suspect]
     Active Substance: IBUPROFEN
     Indication: Product used for unknown indication
     Dosage: UNK, TOTAL (NIT OF MEASUREMENT: MILLIGRAMS FREQUENCY OF ADMINISTRATION: TOTAL ROUTE OF ADMINISTRATIO
     Route: 048
     Dates: start: 20231206, end: 20231206

REACTIONS (2)
  - Dysphonia [Recovered/Resolved]
  - Rash pruritic [Recovered/Resolved]

NARRATIVE: CASE EVENT DATE: 20231206
